FAERS Safety Report 12649031 (Version 13)
Quarter: 2017Q2

REPORT INFORMATION
  Report Type: Report from Study
  Country: BE (occurrence: BE)
  Receive Date: 20160812
  Receipt Date: 20170630
  Transmission Date: 20170830
  Serious: Yes (Death, Life-Threatening, Hospitalization, Other)
  Sender: FDA-Public Use
  Company Number: PHHO2016BE011497

PATIENT
  Age: 65 Year
  Sex: Female
  Weight: 47.2 kg

DRUGS (6)
  1. FRAXIPARINE [Concomitant]
     Active Substance: NADROPARIN CALCIUM
     Indication: AORTIC VALVE REPLACEMENT
     Dosage: UNK
     Route: 058
     Dates: start: 20160726
  2. AIN457 [Suspect]
     Active Substance: SECUKINUMAB
     Indication: PSORIASIS
     Dosage: 300 MG/MONTH
     Route: 058
     Dates: start: 20160215, end: 20160808
  3. ACIDE VALPROIQUE [Concomitant]
     Indication: EPILEPSY
     Dosage: 500 MG/D, UNK
     Route: 048
     Dates: start: 198206
  4. MEDROL [Suspect]
     Active Substance: METHYLPREDNISOLONE
     Indication: BACK PAIN
     Dosage: 64 MG/D, UNK
     Route: 048
     Dates: start: 20160714, end: 20160718
  5. ACENOCOUMAROL [Concomitant]
     Active Substance: ACENOCOUMAROL
     Indication: ANTICOAGULANT THERAPY
     Dosage: 1.5 MG/D, UNK
     Route: 048
     Dates: start: 20080529, end: 20160718
  6. LAMOTRIGINE. [Concomitant]
     Active Substance: LAMOTRIGINE
     Indication: EPILEPSY
     Dosage: 150 MG/D, UNK
     Route: 048
     Dates: start: 198206

REACTIONS (4)
  - Endocarditis [Fatal]
  - Pneumonia pseudomonal [Fatal]
  - Osteomyelitis [Not Recovered/Not Resolved]
  - Renal failure [Not Recovered/Not Resolved]

NARRATIVE: CASE EVENT DATE: 20160719
